FAERS Safety Report 8903275 (Version 7)
Quarter: 2016Q3

REPORT INFORMATION
  Report Type: Spontaneous
  Country: US (occurrence: US)
  Receive Date: 20121112
  Receipt Date: 20160802
  Transmission Date: 20161109
  Serious: Yes (Death, Hospitalization, Disabling, Other)
  Sender: FDA-Public Use
  Company Number: US-009507513-1211USA004396

PATIENT
  Sex: Female
  Weight: 49.89 kg

DRUGS (4)
  1. ALENDRONATE SODIUM. [Suspect]
     Active Substance: ALENDRONATE SODIUM
     Indication: OSTEOPOROSIS
     Dosage: 70 MG, QW
     Route: 048
     Dates: start: 200802, end: 201109
  2. VITAMINS (UNSPECIFIED) [Concomitant]
     Active Substance: VITAMINS
     Dosage: UNK
     Dates: start: 1990, end: 2011
  3. FOSAMAX [Suspect]
     Active Substance: ALENDRONATE SODIUM
     Indication: OSTEOPOROSIS
     Dosage: 70 MG, QW
     Route: 048
     Dates: start: 200201
  4. CALCIUM (UNSPECIFIED) [Concomitant]
     Active Substance: CALCIUM
     Dosage: UNK
     Dates: start: 1990, end: 2011

REACTIONS (37)
  - Pubis fracture [Unknown]
  - Intramedullary rod insertion [Not Recovered/Not Resolved]
  - Iron deficiency anaemia [Unknown]
  - Paralysis [Unknown]
  - Pyrexia [Recovered/Resolved]
  - Compression fracture [Unknown]
  - Intraocular lens implant [Unknown]
  - Osteoarthritis [Unknown]
  - Femur fracture [Not Recovered/Not Resolved]
  - Cerebrovascular accident [Recovering/Resolving]
  - Diarrhoea [Recovered/Resolved]
  - Contusion [Unknown]
  - Hypertension [Unknown]
  - Dizziness [Unknown]
  - Multiple organ dysfunction syndrome [Fatal]
  - Femoral neck fracture [Unknown]
  - Eye disorder [Unknown]
  - Cataract [Unknown]
  - Nausea [Unknown]
  - Respiratory failure [Fatal]
  - Chronic obstructive pulmonary disease [Fatal]
  - Hip arthroplasty [Unknown]
  - Bradycardia [Recovered/Resolved]
  - Tonsillectomy [Unknown]
  - Fall [Unknown]
  - Fall [Unknown]
  - Fibrin D dimer increased [Unknown]
  - Strabismus [Unknown]
  - Dry skin [Unknown]
  - Arthralgia [Unknown]
  - Fall [Unknown]
  - Cerebrovascular accident [Unknown]
  - Sensory loss [Unknown]
  - Hyperkalaemia [Unknown]
  - Back pain [Unknown]
  - Depression [Unknown]
  - Mitral valve prolapse [Unknown]

NARRATIVE: CASE EVENT DATE: 200411
